FAERS Safety Report 5407966-1 (Version None)
Quarter: 2007Q3

REPORT INFORMATION
  Report Type: 
  Country: None (occurrence: None)
  Receive Date: 20070803
  Receipt Date: 20070719
  Transmission Date: 20080115
  Serious: Yes (Hospitalization)
  Sender: FDA-Public Use
  Company Number: 2007001323

PATIENT
  Age: 60 Year
  Sex: Male
  Weight: 75.5 kg

DRUGS (2)
  1. ERLOTINIB (TABLET) (ERLOTINIB HCL) [Suspect]
     Indication: OESOPHAGEAL CARCINOMA
     Dosage: 100 MG (QD), ORAL
     Route: 048
     Dates: start: 20070629, end: 20070710
  2. IRINOTECAN  (IRINOTECAN ) (INJECTION FOR INFUSION) [Suspect]
     Indication: OESOPHAGEAL CARCINOMA
     Dosage: 150 MG/M2 (Q 21 DAYS), INTRAVENOUS
     Route: 042
     Dates: start: 20070629

REACTIONS (11)
  - CHEST DISCOMFORT [None]
  - CHEST PAIN [None]
  - DEHYDRATION [None]
  - DIARRHOEA [None]
  - DYSPNOEA [None]
  - HYPERGLYCAEMIA [None]
  - HYPERHIDROSIS [None]
  - HYPONATRAEMIA [None]
  - HYPOTENSION [None]
  - RENAL FAILURE ACUTE [None]
  - WHITE BLOOD CELL COUNT DECREASED [None]
